FAERS Safety Report 18566678 (Version 1)
Quarter: 2020Q4

REPORT INFORMATION
  Report Type: Spontaneous
  Country: GB (occurrence: GB)
  Receive Date: 20201201
  Receipt Date: 20201201
  Transmission Date: 20210114
  Serious: Yes (Life-Threatening)
  Sender: FDA-Public Use
  Company Number: GB-BAYER-2020-257781

PATIENT
  Age: 4 Year
  Sex: Male
  Weight: 13.2 kg

DRUGS (5)
  1. LORATADINE. [Suspect]
     Active Substance: LORATADINE
     Indication: PRURITUS
     Route: 048
     Dates: start: 20200805, end: 20200910
  2. CHLORAL HYDRATE [Concomitant]
     Active Substance: CHLORAL HYDRATE
  3. IMODIUM [Concomitant]
     Active Substance: LOPERAMIDE HYDROCHLORIDE
  4. MELATONIN [Concomitant]
     Active Substance: MELATONIN
  5. SODIUM VALPROATE [Concomitant]
     Active Substance: VALPROATE SODIUM

REACTIONS (5)
  - Eye disorder [Not Recovered/Not Resolved]
  - Stevens-Johnson syndrome [Recovered/Resolved with Sequelae]
  - Skin burning sensation [Not Recovered/Not Resolved]
  - Lung disorder [Not Recovered/Not Resolved]
  - Gastric disorder [Not Recovered/Not Resolved]

NARRATIVE: CASE EVENT DATE: 20200828
